FAERS Safety Report 20501493 (Version 1)
Quarter: 2022Q1

REPORT INFORMATION
  Report Type: Spontaneous
  Country: US (occurrence: None)
  Receive Date: 20220221
  Receipt Date: 20220221
  Transmission Date: 20220423
  Serious: Yes (Disabling)
  Sender: FDA-Public Use
  Company Number: None

PATIENT
  Age: 59 Year
  Sex: Male

DRUGS (1)
  1. CAPECITABINE [Suspect]
     Active Substance: CAPECITABINE
     Indication: Neoplasm malignant
     Dosage: OTHER FREQUENCY : EVERY21 DAYS;?
     Route: 048
     Dates: start: 20210701

REACTIONS (3)
  - Hypoaesthesia [None]
  - Nail discolouration [None]
  - Hypoaesthesia [None]

NARRATIVE: CASE EVENT DATE: 20220118
